FAERS Safety Report 23943304 (Version 1)
Quarter: 2024Q2

REPORT INFORMATION
  Report Type: Spontaneous
  Country: FR (occurrence: FR)
  Receive Date: 20240605
  Receipt Date: 20240605
  Transmission Date: 20240716
  Serious: Yes (Other)
  Sender: FDA-Public Use
  Company Number: None

PATIENT

DRUGS (3)
  1. KUVAN [Suspect]
     Active Substance: SAPROPTERIN DIHYDROCHLORIDE
     Indication: Phenylketonuria
     Dosage: UNK
     Route: 048
     Dates: start: 201703, end: 202308
  2. SAPROPTERIN DIHYDROCHLORIDE [Suspect]
     Active Substance: SAPROPTERIN DIHYDROCHLORIDE
     Indication: Phenylketonuria
     Dosage: 300 MILLIGRAM, QD
     Route: 048
     Dates: start: 202401
  3. SAPROPTERIN DIHYDROCHLORIDE [Suspect]
     Active Substance: SAPROPTERIN DIHYDROCHLORIDE
     Dosage: 200 MILLIGRAM, QD
     Route: 048
     Dates: start: 202308, end: 202401

REACTIONS (2)
  - Amino acid level increased [Not Recovered/Not Resolved]
  - Therapeutic response changed [Not Recovered/Not Resolved]

NARRATIVE: CASE EVENT DATE: 20230901
